FAERS Safety Report 15919866 (Version 1)
Quarter: 2019Q1

REPORT INFORMATION
  Report Type: Spontaneous
  Country: US (occurrence: US)
  Receive Date: 20190205
  Receipt Date: 20190205
  Transmission Date: 20190417
  Serious: No
  Sender: FDA-Public Use
  Company Number: US-ROCHE-2146376

PATIENT
  Sex: Female
  Weight: 97.61 kg

DRUGS (2)
  1. XOLAIR [Suspect]
     Active Substance: OMALIZUMAB
     Dosage: ONE SHOT IN EACH ARM ;ONGOING: NO
     Route: 065
     Dates: end: 201608
  2. XOLAIR [Suspect]
     Active Substance: OMALIZUMAB
     Indication: URTICARIA
     Dosage: ONE SHOT IN EACH ARM STOPPED 5-6 MONTHS ;ONGOING: NO
     Route: 065
     Dates: start: 2015

REACTIONS (3)
  - Contusion [Not Recovered/Not Resolved]
  - Urticaria [Recovered/Resolved]
  - Pruritus [Recovered/Resolved]

NARRATIVE: CASE EVENT DATE: 2016
